FAERS Safety Report 15901468 (Version 6)
Quarter: 2020Q1

REPORT INFORMATION
  Report Type: Report from Study
  Country: US (occurrence: US)
  Receive Date: 20190201
  Receipt Date: 20200127
  Transmission Date: 20200409
  Serious: Yes (Hospitalization, Other)
  Sender: FDA-Public Use
  Company Number: PHEH2019US004635

PATIENT
  Age: 56 Year
  Sex: Female

DRUGS (2)
  1. COSENTYX [Suspect]
     Active Substance: SECUKINUMAB
     Indication: PSORIASIS
     Dosage: 300 MG, QW (ONCE WEEKLY X 5 DOSES, THEN ONCE EVERY 4 WEEKS)
     Route: 058
     Dates: start: 20190124, end: 201907
  2. COSENTYX [Suspect]
     Active Substance: SECUKINUMAB
     Indication: PSORIATIC ARTHROPATHY

REACTIONS (22)
  - Haematuria [Unknown]
  - Fatigue [Recovered/Resolved]
  - Fatigue [Not Recovered/Not Resolved]
  - Skin swelling [Unknown]
  - Renal pain [Unknown]
  - Memory impairment [Unknown]
  - Gastroenteritis viral [Unknown]
  - Psoriasis [Recovering/Resolving]
  - Skin exfoliation [Unknown]
  - Erythema [Unknown]
  - Cognitive disorder [Unknown]
  - Asthenia [Unknown]
  - Blood creatinine decreased [Unknown]
  - Arthralgia [Recovering/Resolving]
  - Renal impairment [Unknown]
  - Cyst [Recovering/Resolving]
  - Disorientation [Unknown]
  - Renal disorder [Unknown]
  - Skin tightness [Unknown]
  - Kidney infection [Unknown]
  - Urine analysis abnormal [Not Recovered/Not Resolved]
  - Urinary tract infection [Recovered/Resolved]

NARRATIVE: CASE EVENT DATE: 20190125
